FAERS Safety Report 7629855-4 (Version None)
Quarter: 2011Q3

REPORT INFORMATION
  Report Type: 
  Country: None (occurrence: None)
  Receive Date: 20110722
  Receipt Date: 20100927
  Transmission Date: 20111222
  Serious: No
  Sender: FDA-Public Use
  Company Number: US-MYLANLABS-2010S1017899

PATIENT
  Age: 53 Year
  Sex: Female
  Weight: 72.58 kg

DRUGS (1)
  1. CLONIDINE HYDROCHLORIDE [Suspect]
     Indication: HYPERTENSION
     Route: 048
     Dates: start: 20100801

REACTIONS (1)
  - VOMITING [None]
